FAERS Safety Report 8021944-8 (Version None)
Quarter: 2012Q1

REPORT INFORMATION
  Report Type: 
  Country: None (occurrence: None)
  Receive Date: 20120104
  Receipt Date: 20111230
  Transmission Date: 20120608
  Serious: Yes (Hospitalization)
  Sender: FDA-Public Use
  Company Number: FR-SANOFI-AVENTIS-2011SA085637

PATIENT
  Age: 69 Year
  Sex: Male

DRUGS (2)
  1. CANDESARTAN CILEXETIL AND HYDROCHLOROTHIAZIDE [Suspect]
     Route: 048
     Dates: end: 20101228
  2. MULTAQ [Suspect]
     Route: 048
     Dates: start: 20101101, end: 20101228

REACTIONS (1)
  - RENAL FAILURE ACUTE [None]
